FAERS Safety Report 6657415-0 (Version None)
Quarter: 2010Q1

REPORT INFORMATION
  Report Type: 
  Country: None (occurrence: None)
  Receive Date: 20100330
  Receipt Date: 20100317
  Transmission Date: 20100710
  Serious: Yes (Hospitalization)
  Sender: FDA-Public Use
  Company Number: US-PFIZER INC-2010035045

PATIENT
  Sex: Female
  Weight: 112.47 kg

DRUGS (5)
  1. CHANTIX [Suspect]
     Indication: SMOKING CESSATION THERAPY
     Dosage: 0.5 MG, 2X/DAY
     Route: 048
     Dates: start: 20100201
  2. SYNTHROID [Concomitant]
     Dosage: UNK
  3. TRICOR [Concomitant]
     Indication: BLOOD CHOLESTEROL INCREASED
     Dosage: UNK
  4. PAXIL [Concomitant]
     Dosage: UNK
  5. LAMICTAL CD [Concomitant]
     Dosage: UNK

REACTIONS (1)
  - PNEUMONIA [None]
